FAERS Safety Report 4398516-X (Version None)
Quarter: 2004Q3

REPORT INFORMATION
  Report Type: 
  Country: None (occurrence: None)
  Receive Date: 20040715
  Receipt Date: 20040714
  Transmission Date: 20050211
  Serious: Yes (Other)
  Sender: FDA-Public Use
  Company Number: US-GLAXOSMITHKLINE-A0518215A

PATIENT
  Age: 66 Year
  Sex: Female

DRUGS (9)
  1. AVANDAMET [Suspect]
  2. CELEBREX [Concomitant]
  3. STARLIX [Concomitant]
  4. GLUCOPHAGE [Concomitant]
  5. TOPROL-XL [Concomitant]
  6. LIPITOR [Concomitant]
  7. ASPIRIN [Concomitant]
  8. BENECOL [Concomitant]
  9. LEVOXYL [Concomitant]

REACTIONS (7)
  - ANGINA PECTORIS [None]
  - DIFFICULTY IN WALKING [None]
  - DIZZINESS [None]
  - HEADACHE [None]
  - HYPERTENSION [None]
  - PALPITATIONS [None]
  - VISION BLURRED [None]
